FAERS Safety Report 11832916 (Version 2)
Quarter: 2015Q4

REPORT INFORMATION
  Report Type: Spontaneous
  Country: DE (occurrence: DE)
  Receive Date: 20151214
  Receipt Date: 20151217
  Transmission Date: 20160305
  Serious: Yes (Life-Threatening)
  Sender: FDA-Public Use
  Company Number: GXKR2015DE005407

PATIENT

DRUGS (8)
  1. KEPPRA [Concomitant]
     Active Substance: LEVETIRACETAM
     Indication: EPILEPSY
     Dosage: DAILY DOSE: 3 MG MILLGRAM(S) EVERY DAYS
     Route: 048
     Dates: start: 201407
  2. BACLOFEN. [Concomitant]
     Active Substance: BACLOFEN
     Indication: PARESIS
     Dosage: 1325 UG, QD
     Route: 037
     Dates: start: 201305
  3. MIRTAZAPIN [Concomitant]
     Active Substance: MIRTAZAPINE
     Indication: SLEEP DISORDER
     Dosage: 7.5 MG, TID (0-7.5MG-15MG)
     Route: 048
  4. GABAPENTIN. [Concomitant]
     Active Substance: GABAPENTIN
     Indication: NEURALGIA
     Dosage: 100 MG, BID
     Route: 048
     Dates: start: 20150824
  5. OMEPRAZOLE. [Concomitant]
     Active Substance: OMEPRAZOLE
     Indication: GASTRITIS
     Dosage: 20 MG, QD
     Route: 048
  6. AMANTADINE [Suspect]
     Active Substance: AMANTADINE
     Indication: DEPRESSED LEVEL OF CONSCIOUSNESS
     Dosage: 50 MG, BID
     Route: 048
     Dates: start: 20150820, end: 20150824
  7. AMANTADINE [Suspect]
     Active Substance: AMANTADINE
     Dosage: 100 MG, BID
     Route: 048
     Dates: start: 20150825, end: 20150831
  8. AMANTADINE [Suspect]
     Active Substance: AMANTADINE
     Dosage: 50 MG, BID
     Route: 048
     Dates: start: 20150901, end: 20150902

REACTIONS (1)
  - Apnoea [Recovered/Resolved]

NARRATIVE: CASE EVENT DATE: 20150825
